FAERS Safety Report 6771398-4 (Version None)
Quarter: 2010Q2

REPORT INFORMATION
  Report Type: 
  Country: None (occurrence: None)
  Receive Date: 20100520
  Receipt Date: 20090521
  Transmission Date: 20101027
  Serious: Yes (Other)
  Sender: FDA-Public Use
  Company Number: 2008059039

PATIENT
  Age: 70 Year
  Sex: Female
  Weight: 51 kg

DRUGS (8)
  1. PROVERA [Suspect]
     Indication: HORMONE REPLACEMENT THERAPY
     Dosage: 2.5 MG, ORAL
     Route: 048
     Dates: start: 19890101, end: 20010101
  2. OGEN [Suspect]
     Indication: HORMONE REPLACEMENT THERAPY
     Dosage: 0.625 MG, ORAL
     Route: 048
  3. ESTRADIOL [Suspect]
     Indication: HORMONE REPLACEMENT THERAPY
     Dosage: 0.02 MG
     Dates: start: 19890101, end: 19900101
  4. ACTIVELLA [Suspect]
     Indication: HORMONE REPLACEMENT THERAPY
     Dosage: 0.05 MG
     Dates: start: 20010101, end: 20030101
  5. OGEN [Suspect]
     Indication: HORMONE REPLACEMENT THERAPY
     Dosage: 0.625 MG
     Dates: start: 19910101, end: 20010101
  6. ETHINYL ESTRADIOL TAB [Suspect]
     Indication: HORMONE REPLACEMENT THERAPY
     Dosage: 0.02 MG
     Dates: start: 19900101, end: 19910101
  7. THYROLAR (LEVOTHYROXINE SODIUM, LIOTHYRONINE SODIUM) [Concomitant]
  8. CALAN [Concomitant]

REACTIONS (1)
  - BREAST CANCER FEMALE [None]
